FAERS Safety Report 19976570 (Version 1)
Quarter: 2021Q4

REPORT INFORMATION
  Report Type: Spontaneous
  Country: TR (occurrence: TR)
  Receive Date: 20211020
  Receipt Date: 20211020
  Transmission Date: 20220303
  Serious: Yes (Hospitalization)
  Sender: FDA-Public Use
  Company Number: TR-ABBVIE-21K-161-4123064-00

PATIENT
  Age: 25 Year
  Sex: Male

DRUGS (4)
  1. SEVOFLURANE [Suspect]
     Active Substance: SEVOFLURANE
     Indication: Otoplasty
     Dosage: UNKNOWN
     Route: 055
     Dates: start: 202107, end: 202107
  2. ROCURONIUM BROMIDE [Concomitant]
     Active Substance: ROCURONIUM BROMIDE
     Indication: Otoplasty
     Dosage: UNKNOWN
     Route: 042
     Dates: start: 202107, end: 202107
  3. FENTANYL CITRATE [Concomitant]
     Active Substance: FENTANYL CITRATE
     Indication: Otoplasty
     Dosage: UNKNOWN
     Route: 042
     Dates: start: 202107, end: 202107
  4. PROPOFOL [Concomitant]
     Active Substance: PROPOFOL
     Indication: Otoplasty
     Dosage: UNKNOWN
     Route: 042
     Dates: start: 202107, end: 202107

REACTIONS (4)
  - Pulmonary alveolar haemorrhage [Recovered/Resolved]
  - Epistaxis [Recovered/Resolved]
  - Acute respiratory distress syndrome [Recovered/Resolved]
  - Oxygen saturation decreased [Recovered/Resolved]

NARRATIVE: CASE EVENT DATE: 20210701
